FAERS Safety Report 25994839 (Version 1)
Quarter: 2025Q4

REPORT INFORMATION
  Report Type: Spontaneous
  Country: US (occurrence: US)
  Receive Date: 20251104
  Receipt Date: 20251104
  Transmission Date: 20260117
  Serious: No
  Sender: ALEXION PHARMACEUTICALS
  Company Number: US-AstraZeneca-CH-00981101A

PATIENT

DRUGS (1)
  1. ANDEXXA [Suspect]
     Active Substance: ANDEXANET ALFA
     Route: 065

REACTIONS (1)
  - Product dose omission issue [Unknown]
